FAERS Safety Report 12544987 (Version 2)
Quarter: 2017Q3

REPORT INFORMATION
  Report Type: Report from Study
  Country: BR (occurrence: BR)
  Receive Date: 20160711
  Receipt Date: 20170913
  Transmission Date: 20171127
  Serious: Yes (Other)
  Sender: FDA-Public Use
  Company Number: BR-JNJFOC-20160706935

PATIENT
  Sex: Female
  Weight: 73 kg

DRUGS (5)
  1. NAPRIX [Concomitant]
     Active Substance: RAMIPRIL
     Route: 065
  2. NIMESULIDA [Concomitant]
     Active Substance: NIMESULIDE
     Route: 065
  3. ADVIL [Concomitant]
     Active Substance: IBUPROFEN
     Route: 065
  4. GLUCOSAMINE [Concomitant]
     Active Substance: GLUCOSAMINE
     Route: 065
  5. SIMPONI [Suspect]
     Active Substance: GOLIMUMAB
     Indication: RHEUMATOID ARTHRITIS
     Route: 058
     Dates: start: 20160309

REACTIONS (3)
  - Arthralgia [Unknown]
  - Zika virus infection [Recovering/Resolving]
  - Influenza [Unknown]
